FAERS Safety Report 4384716-1 (Version None)
Quarter: 2004Q2

REPORT INFORMATION
  Report Type: 
  Country: None (occurrence: None)
  Receive Date: 20040621
  Receipt Date: 20040610
  Transmission Date: 20050107
  Serious: Yes (Other)
  Sender: FDA-Public Use
  Company Number: 2004-05-2042

PATIENT
  Age: 74 Year
  Sex: Female
  Weight: 94 kg

DRUGS (6)
  1. AERIUS (DESLORATADINE) TABLETS   'LIKE CLARINEX' [Suspect]
     Indication: ECZEMA
     Dosage: 5 MG QD ORAL
     Route: 048
     Dates: start: 20040326, end: 20040402
  2. ALDALIX (SPIRONOLACTONE/FUROSEMIDE) [Concomitant]
  3. BISOPROLOL [Concomitant]
  4. MEDIATENSYL (URAPIDIL) [Concomitant]
  5. PROPOFOL [Concomitant]
  6. DIGOXIN [Concomitant]

REACTIONS (2)
  - DRUG INTERACTION [None]
  - HALLUCINATIONS, MIXED [None]
